FAERS Safety Report 4583084-X (Version None)
Quarter: 2005Q1

REPORT INFORMATION
  Report Type: 
  Country: None (occurrence: None)
  Receive Date: 20050125
  Receipt Date: 20041001
  Transmission Date: 20050727
  Serious: No
  Sender: FDA-Public Use
  Company Number: USA041079970

PATIENT
  Age: 74 Year
  Sex: Female

DRUGS (3)
  1. FORTEO [Suspect]
     Indication: OSTEOPOROSIS
     Dates: start: 20040818
  2. ALDACTONE [Concomitant]
  3. VITAMIN E [Concomitant]

REACTIONS (2)
  - HOT FLUSH [None]
  - NIPPLE PAIN [None]
